FAERS Safety Report 6294654-5 (Version None)
Quarter: 2009Q3

REPORT INFORMATION
  Report Type: 
  Country: None (occurrence: None)
  Receive Date: 20090731
  Receipt Date: 20090731
  Transmission Date: 20100115
  Serious: Yes (Other)
  Sender: FDA-Public Use
  Company Number: None

PATIENT
  Age: 42 Year
  Sex: Male
  Weight: 107.0489 kg

DRUGS (1)
  1. CHANTIX [Suspect]
     Indication: SMOKING CESSATION THERAPY
     Dosage: 1 TABLET 2X A DAY PO
     Route: 048
     Dates: start: 20090618, end: 20090707

REACTIONS (4)
  - AGITATION [None]
  - DEPRESSION [None]
  - MOOD SWINGS [None]
  - SUICIDAL IDEATION [None]
